FAERS Safety Report 25847691 (Version 1)
Quarter: 2025Q3

REPORT INFORMATION
  Report Type: Spontaneous
  Country: US (occurrence: None)
  Receive Date: 20250924
  Receipt Date: 20250924
  Transmission Date: 20251021
  Serious: Yes (Life-Threatening, Hospitalization)
  Sender: FDA-CTU
  Company Number: None

PATIENT
  Age: 84 Year
  Sex: Male
  Weight: 112.5 kg

DRUGS (2)
  1. WEGOVY [Suspect]
     Active Substance: SEMAGLUTIDE
     Indication: Obesity
     Route: 058
     Dates: start: 20240801, end: 20250824
  2. WEGOVY [Concomitant]
     Active Substance: SEMAGLUTIDE
     Dates: start: 20240801, end: 20250824

REACTIONS (3)
  - Oesophageal obstruction [None]
  - Oesophageal food impaction [None]
  - Pneumonitis aspiration [None]

NARRATIVE: CASE EVENT DATE: 20250824
